FAERS Safety Report 15367154 (Version 1)
Quarter: 2018Q3

REPORT INFORMATION
  Report Type: Spontaneous
  Country: US (occurrence: US)
  Receive Date: 20180910
  Receipt Date: 20180910
  Transmission Date: 20181010
  Serious: No
  Sender: FDA-Public Use
  Company Number: US-ALLERGAN-1773471US

PATIENT
  Age: 72 Year
  Sex: Female

DRUGS (10)
  1. OMEPRAZOLE. [Concomitant]
     Active Substance: OMEPRAZOLE
     Indication: GASTROOESOPHAGEAL REFLUX DISEASE
     Dosage: 40 MG, BID
     Route: 065
     Dates: start: 201710
  2. VITAMIN D [Concomitant]
     Active Substance: CHOLECALCIFEROL
     Dosage: UNK
     Dates: start: 2012
  3. LOVASTATIN. [Concomitant]
     Active Substance: LOVASTATIN
     Dosage: UNK
     Route: 065
     Dates: start: 2012
  4. PROLIA [Concomitant]
     Active Substance: DENOSUMAB
     Dosage: UNK
     Route: 065
     Dates: start: 2016
  5. HYDROCODONE [Concomitant]
     Active Substance: HYDROCODONE
     Dosage: UNK
     Route: 065
     Dates: start: 201409
  6. SUCRALFATE ? BP [Suspect]
     Active Substance: SUCRALFATE
     Indication: GASTRITIS
     Dosage: 1 G, QID
     Route: 048
     Dates: start: 20171214
  7. ESTRADIOL. [Concomitant]
     Active Substance: ESTRADIOL
     Dosage: UNK
     Route: 065
  8. CALCIUM [Concomitant]
     Active Substance: CALCIUM
     Route: 065
  9. OMEPRAZOLE. [Concomitant]
     Active Substance: OMEPRAZOLE
     Indication: GASTRITIS
     Dosage: 20 MG, QD
     Route: 065
     Dates: start: 2012, end: 201706
  10. ECOTRIM [Concomitant]
     Dosage: UNK
     Route: 065
     Dates: start: 2016

REACTIONS (6)
  - Wrong technique in product usage process [Unknown]
  - Pain [Not Recovered/Not Resolved]
  - Gastritis [Not Recovered/Not Resolved]
  - Abdominal pain [Unknown]
  - Drug ineffective [Unknown]
  - Inappropriate schedule of drug administration [Unknown]

NARRATIVE: CASE EVENT DATE: 201712
